FAERS Safety Report 22224546 (Version 1)
Quarter: 2023Q2

REPORT INFORMATION
  Report Type: Spontaneous
  Country: US (occurrence: US)
  Receive Date: 20230418
  Receipt Date: 20230418
  Transmission Date: 20230721
  Serious: No
  Sender: FDA-Public Use
  Company Number: US-ABBVIE-4711614

PATIENT
  Sex: Female
  Weight: 97.068 kg

DRUGS (1)
  1. HUMIRA [Suspect]
     Active Substance: ADALIMUMAB
     Indication: Psoriasis
     Route: 058
     Dates: start: 2016, end: 2019

REACTIONS (4)
  - Limb injury [Recovered/Resolved]
  - Hypoaesthesia [Recovered/Resolved]
  - Inflammatory bowel disease [Not Recovered/Not Resolved]
  - Fall [Recovered/Resolved]

NARRATIVE: CASE EVENT DATE: 20160101
